FAERS Safety Report 20673498 (Version 1)
Quarter: 2022Q2

REPORT INFORMATION
  Report Type: Spontaneous
  Country: US (occurrence: None)
  Receive Date: 20220403
  Receipt Date: 20220403
  Transmission Date: 20220721
  Serious: No
  Sender: FDA-Public Use
  Company Number: None

PATIENT
  Age: 81 Year
  Sex: Male
  Weight: 95.25 kg

DRUGS (1)
  1. ZOLEDRONIC ACID [Suspect]
     Active Substance: ZOLEDRONIC ACID
     Indication: Chemotherapy
     Dosage: FREQUENCY : ONCE;?
     Route: 042
     Dates: start: 20200930, end: 20200930

REACTIONS (4)
  - Face oedema [None]
  - Uveitis [None]
  - Conjunctivitis [None]
  - Periorbital cellulitis [None]

NARRATIVE: CASE EVENT DATE: 20201002
